APPROVED DRUG PRODUCT: METFORMIN HYDROCHLORIDE
Active Ingredient: METFORMIN HYDROCHLORIDE
Strength: 1GM
Dosage Form/Route: TABLET, EXTENDED RELEASE;ORAL
Application: A090692 | Product #002 | TE Code: AB2
Applicant: LUPIN LTD
Approved: Jun 29, 2011 | RLD: No | RS: Yes | Type: RX